FAERS Safety Report 9316524 (Version 2)
Quarter: 2013Q2

REPORT INFORMATION
  Report Type: Spontaneous
  Country: US (occurrence: US)
  Receive Date: 20130530
  Receipt Date: 20130617
  Transmission Date: 20140414
  Serious: Yes (Hospitalization, Other)
  Sender: FDA-Public Use
  Company Number: US-PFIZER INC-2013164086

PATIENT
  Sex: Female
  Weight: 122 kg

DRUGS (4)
  1. NEURONTIN [Suspect]
     Indication: NEUROPATHY PERIPHERAL
     Dosage: 1200 MG, 2X/DAY
  2. SIMVASTATIN [Concomitant]
     Indication: BLOOD CHOLESTEROL INCREASED
     Dosage: 40 MG, UNK
  3. LISINOPRIL [Concomitant]
     Indication: HYPERTENSION
     Dosage: 10 MG, 1X/DAY
  4. GLUCOTROL [Concomitant]
     Indication: DIABETES MELLITUS
     Dosage: 10 MG, 1X/DAY

REACTIONS (3)
  - Pulmonary oedema [Recovering/Resolving]
  - Dyspnoea [Recovering/Resolving]
  - Asthenia [Recovering/Resolving]
